FAERS Safety Report 10029325 (Version 1)
Quarter: 2014Q1

REPORT INFORMATION
  Report Type: Spontaneous
  Country: US (occurrence: US)
  Receive Date: 20140321
  Receipt Date: 20140321
  Transmission Date: 20141002
  Serious: Yes (Other)
  Sender: FDA-Public Use
  Company Number: CHPA2014US004135

PATIENT
  Age: 63 Year
  Sex: Female

DRUGS (9)
  1. PREVACID 24HR 15MG [Suspect]
     Indication: GASTROOESOPHAGEAL REFLUX DISEASE
     Dosage: 15 MG, QD
     Route: 048
     Dates: start: 2009
  2. PREVACID 24HR 15MG [Suspect]
     Indication: OFF LABEL USE
  3. KLONOPIN [Concomitant]
     Indication: ORAL DISCOMFORT
     Dosage: UNK, UNK
  4. SYNTHROID [Concomitant]
     Indication: THYROID DISORDER
     Dosage: UNK
  5. PROZAC [Concomitant]
     Dosage: UNK
     Dates: start: 1996
  6. VICODIN [Concomitant]
     Dosage: UNK
  7. ROBAXIN [Concomitant]
     Dosage: UNK
  8. TOPROL [Concomitant]
     Dosage: UNK, BID
  9. COSAMIN DS [Concomitant]
     Indication: MUSCULOSKELETAL DISCOMFORT

REACTIONS (3)
  - Anaemia [Unknown]
  - Drug ineffective for unapproved indication [Unknown]
  - Incorrect drug administration duration [Unknown]
